FAERS Safety Report 25088512 (Version 3)
Quarter: 2025Q3

REPORT INFORMATION
  Report Type: Report from Study
  Country: CA (occurrence: CA)
  Receive Date: 20250318
  Receipt Date: 20250809
  Transmission Date: 20251021
  Serious: Yes (Other)
  Sender: ALEXION PHARMACEUTICALS
  Company Number: CA-AstraZeneca-CH-00826057A

PATIENT
  Age: 32 Year
  Sex: Female

DRUGS (7)
  1. ANIFROLUMAB [Suspect]
     Active Substance: ANIFROLUMAB
     Indication: Systemic lupus erythematosus
     Dates: start: 20241122
  2. ANIFROLUMAB [Suspect]
     Active Substance: ANIFROLUMAB
     Indication: Autoantibody positive
  3. PREDNISONE [Concomitant]
     Active Substance: PREDNISONE
     Indication: Arthritis
     Dosage: 100 MILLIGRAM, QD
     Route: 065
  4. METHOTREXATE [Concomitant]
     Active Substance: METHOTREXATE
     Route: 065
  5. AZATHIOPRINE [Concomitant]
     Active Substance: AZATHIOPRINE
     Dosage: 100 MILLIGRAM, QD
     Route: 065
  6. BENLYSTA [Concomitant]
     Active Substance: BELIMUMAB
     Route: 065
  7. MYCOPHENOLATE MOFETIL [Concomitant]
     Active Substance: MYCOPHENOLATE MOFETIL
     Dosage: 1000 MILLIGRAM, BID
     Route: 065

REACTIONS (6)
  - Lower respiratory tract infection [Unknown]
  - Pneumonitis [Unknown]
  - Nasopharyngitis [Unknown]
  - Vomiting [Unknown]
  - Hypersensitivity [Unknown]
  - Wound infection [Unknown]

NARRATIVE: CASE EVENT DATE: 20250319
